FAERS Safety Report 23752315 (Version 1)
Quarter: 2024Q2

REPORT INFORMATION
  Report Type: Spontaneous
  Country: US (occurrence: None)
  Receive Date: 20240417
  Receipt Date: 20240417
  Transmission Date: 20240716
  Serious: Yes (Hospitalization)
  Sender: FDA-Public Use
  Company Number: None

PATIENT
  Age: 52 Year
  Sex: Male
  Weight: 102 kg

DRUGS (1)
  1. CISPLATIN [Suspect]
     Active Substance: CISPLATIN
     Dates: end: 20240319

REACTIONS (17)
  - Syncope [None]
  - Fall [None]
  - Head injury [None]
  - Oral candidiasis [None]
  - Decreased appetite [None]
  - Hypophagia [None]
  - Orthostatic hypotension [None]
  - Hyponatraemia [None]
  - Failure to thrive [None]
  - Malnutrition [None]
  - Unresponsive to stimuli [None]
  - Chest pain [None]
  - Dyspnoea [None]
  - Illness [None]
  - Pulmonary embolism [None]
  - Myocardial strain imaging abnormal [None]
  - Thrombophlebitis [None]

NARRATIVE: CASE EVENT DATE: 20240325
